FAERS Safety Report 18963494 (Version 2)
Quarter: 2021Q1

REPORT INFORMATION
  Report Type: Spontaneous
  Country: US (occurrence: US)
  Receive Date: 20210303
  Receipt Date: 20210308
  Transmission Date: 20210420
  Serious: Yes (Hospitalization)
  Sender: FDA-Public Use
  Company Number: US-RECKITT BENCKISER HEALTHCARE INT LIMITED-RB-84004-2021

PATIENT
  Age: 3 Year
  Sex: Male
  Weight: 20.41 kg

DRUGS (1)
  1. DELSYM (DEXTROMETHORPHAN) [Suspect]
     Active Substance: DEXTROMETHORPHAN
     Indication: PRODUCT USED FOR UNKNOWN INDICATION
     Dosage: SINGLE (AMOUNT USED: POSSIBLY 3 TABLESPOONS)
     Route: 048
     Dates: start: 20210220, end: 20210220

REACTIONS (5)
  - Energy increased [Recovering/Resolving]
  - Abnormal behaviour [Recovering/Resolving]
  - Failure of child resistant product closure [Unknown]
  - Accidental exposure to product by child [Recovering/Resolving]
  - Diarrhoea [Recovered/Resolved]

NARRATIVE: CASE EVENT DATE: 202102
